FAERS Safety Report 4295732-2 (Version None)
Quarter: 2004Q1

REPORT INFORMATION
  Report Type: 
  Country: None (occurrence: None)
  Receive Date: 20040216
  Receipt Date: 20031021
  Transmission Date: 20041129
  Serious: No
  Sender: FDA-Public Use
  Company Number: US-GLAXOSMITHKLINE-A0430956A

PATIENT
  Age: 23 Year
  Sex: Male

DRUGS (4)
  1. LAMICTAL [Suspect]
     Indication: BIPOLAR DISORDER
     Dosage: 100MG PER DAY
     Route: 048
     Dates: start: 20030501, end: 20031019
  2. NEURONTIN [Concomitant]
  3. RISPERDAL [Concomitant]
  4. BUSPAR [Concomitant]

REACTIONS (3)
  - ERYTHEMA [None]
  - HYPERAESTHESIA [None]
  - URETHRAL OBSTRUCTION [None]
